FAERS Safety Report 8807832 (Version 1)
Quarter: 2012Q4

REPORT INFORMATION
  Report Type: 
  Country: US (occurrence: US)
  Receive Date: 20120925
  Receipt Date: 20120925
  Transmission Date: 20130627
  Serious: Yes (Death, Hospitalization)
  Sender: FDA-Public Use
  Company Number: US-GLAXOSMITHKLINE-A0994510A

PATIENT
  Age: 56 Year
  Sex: Male

DRUGS (8)
  1. ARIXTRA [Suspect]
     Indication: ANTICOAGULANT THERAPY
     Dosage: 7.5MG Per day
     Route: 058
     Dates: start: 201204
  2. PROPANOLOL [Concomitant]
  3. PROTONIX [Concomitant]
  4. LACTULOSE [Concomitant]
  5. SPIRONOLACTONE [Concomitant]
  6. FUROSEMIDE [Concomitant]
  7. CIPRO [Concomitant]
  8. MS CONTIN [Concomitant]

REACTIONS (2)
  - Hepatic failure [Fatal]
  - Renal failure acute [Fatal]
